FAERS Safety Report 6900667-X (Version None)
Quarter: 2010Q3

REPORT INFORMATION
  Report Type: 
  Country: None (occurrence: None)
  Receive Date: 20100803
  Receipt Date: 20100722
  Transmission Date: 20110219
  Serious: Yes (Death, Other)
  Sender: FDA-Public Use
  Company Number: PHHY2010US47297

PATIENT
  Sex: Female
  Weight: 55.782 kg

DRUGS (5)
  1. EXJADE [Suspect]
     Indication: MYELODYSPLASTIC SYNDROME
     Dosage: 1000 MG/DAY
     Route: 048
     Dates: start: 20100624, end: 20100715
  2. EXJADE [Suspect]
     Indication: REFRACTORY ANAEMIA
  3. MS CONTIN [Concomitant]
     Indication: PAIN
     Dosage: 60 MG, BID
     Route: 048
  4. COMPAZINE [Concomitant]
     Indication: NAUSEA
     Dosage: UNK
     Route: 048
  5. ZOMETA [Concomitant]
     Indication: BONE DISORDER
     Dosage: UNK
     Dates: start: 20091001

REACTIONS (5)
  - CONCOMITANT DISEASE PROGRESSION [None]
  - DEATH [None]
  - FATIGUE [None]
  - MUSCLE DISORDER [None]
  - MUSCULAR WEAKNESS [None]
